FAERS Safety Report 10570053 (Version 1)
Quarter: 2014Q4

REPORT INFORMATION
  Report Type: Spontaneous
  Country: US (occurrence: None)
  Receive Date: 20141105
  Receipt Date: 20141105
  Transmission Date: 20150529
  Serious: No
  Sender: FDA-Public Use
  Company Number: BB14-339-AE

PATIENT
  Age: 78 Year
  Sex: Female
  Weight: 47.17 kg

DRUGS (4)
  1. FLUOCINOLONE ACETONIDE. [Suspect]
     Active Substance: FLUOCINOLONE ACETONIDE
     Indication: SEBORRHOEIC DERMATITIS
     Dosage: 1APPLICATION/BID/TOPICAL
     Dates: start: 20140414, end: 20140821
  2. VITMAIN SUPPLEMENT [Concomitant]
  3. CLOBBETASOL 0.05% [Concomitant]
  4. PRILOSEC 20MG [Concomitant]

REACTIONS (3)
  - Skin irritation [None]
  - Erythema [None]
  - Drug ineffective [None]

NARRATIVE: CASE EVENT DATE: 201404
